FAERS Safety Report 20597038 (Version 1)
Quarter: 2022Q1

REPORT INFORMATION
  Report Type: Spontaneous
  Country: US (occurrence: None)
  Receive Date: 20220315
  Receipt Date: 20220315
  Transmission Date: 20220423
  Serious: No
  Sender: FDA-Public Use
  Company Number: US-ROCHE-2800686

PATIENT
  Age: 28 Year

DRUGS (1)
  1. XOLAIR [Suspect]
     Active Substance: OMALIZUMAB
     Indication: Chronic spontaneous urticaria
     Route: 058
     Dates: start: 20210213

REACTIONS (2)
  - Throat irritation [Recovering/Resolving]
  - Swelling face [Recovering/Resolving]

NARRATIVE: CASE EVENT DATE: 20210213
